FAERS Safety Report 7648559-5 (Version None)
Quarter: 2011Q3

REPORT INFORMATION
  Report Type: 
  Country: None (occurrence: None)
  Receive Date: 20110801
  Receipt Date: 20110721
  Transmission Date: 20111222
  Serious: Yes (Other)
  Sender: FDA-Public Use
  Company Number: PHFR2011GB02830

PATIENT
  Sex: Male
  Weight: 67.2 kg

DRUGS (12)
  1. CLOZAPINE [Suspect]
     Indication: SCHIZOAFFECTIVE DISORDER
     Dosage: 425 MG DAILY
     Route: 048
  2. HUMALOG [Concomitant]
     Indication: DIABETES MELLITUS
     Route: 058
  3. SENNA [Concomitant]
     Indication: CONSTIPATION
     Dosage: 2 TABLETS NOCTE
     Route: 048
  4. HYOSCINE HYDROBROMIDE [Concomitant]
     Indication: SALIVARY HYPERSECRETION
     Dosage: 600 UG, NOCTE
     Route: 049
  5. LITHIUM CARBONATE [Concomitant]
     Indication: SCHIZOAFFECTIVE DISORDER
     Dosage: 1 G, QD
     Route: 048
     Dates: start: 20110524
  6. LANTUS [Concomitant]
     Dosage: 19 UNITS, QD
  7. CLOZAPINE [Suspect]
     Indication: SCHIZOPHRENIA
     Route: 048
     Dates: start: 20100817
  8. VALPROATE SODIUM [Concomitant]
     Dosage: 500 MG, QD
     Route: 048
  9. ACTRAPID MC [Concomitant]
     Dosage: 4 UNITS PRN
     Route: 058
  10. MOVIPREP [Concomitant]
     Dosage: 1 TABLET QD
     Route: 048
  11. LORAZEPAM [Concomitant]
     Dosage: MAXIMUM 4MG/24 HOURS
     Route: 048
  12. GLUCAGON [Concomitant]
     Dosage: 1G UNK
     Route: 058

REACTIONS (3)
  - LYMPHOCYTE COUNT DECREASED [None]
  - WHITE BLOOD CELL COUNT DECREASED [None]
  - MALAISE [None]
